FAERS Safety Report 7503414-6 (Version None)
Quarter: 2011Q2

REPORT INFORMATION
  Report Type: 
  Country: None (occurrence: None)
  Receive Date: 20110525
  Receipt Date: 20110518
  Transmission Date: 20111010
  Serious: Yes (Other)
  Sender: FDA-Public Use
  Company Number: B0721307A

PATIENT
  Sex: Female

DRUGS (1)
  1. ZINACEF [Suspect]
     Indication: PYELONEPHRITIS ACUTE
     Dosage: 1500MG PER DAY
     Route: 030
     Dates: start: 20110301, end: 20110301

REACTIONS (5)
  - PRODUCT QUALITY ISSUE [None]
  - HEADACHE [None]
  - NAUSEA [None]
  - POISONING [None]
  - MYALGIA [None]
